FAERS Safety Report 9784172 (Version 2)
Quarter: 2014Q1

REPORT INFORMATION
  Report Type: Spontaneous
  Country: IT (occurrence: IT)
  Receive Date: 20131226
  Receipt Date: 20140122
  Transmission Date: 20141002
  Serious: Yes (Hospitalization)
  Sender: FDA-Public Use
  Company Number: IT-TEVA-452461ISR

PATIENT
  Age: 52 Year
  Sex: Male

DRUGS (5)
  1. TICLOPIDINA DOROM [Suspect]
     Indication: CARDIOVASCULAR EVENT PROPHYLAXIS
     Dates: start: 20130709, end: 20131029
  2. NITROCLICERINA [Concomitant]
  3. NORVASC [Concomitant]
  4. COTAREG [Concomitant]
  5. ATENOLOLO [Concomitant]

REACTIONS (3)
  - Febrile neutropenia [Not Recovered/Not Resolved]
  - Bone marrow failure [Not Recovered/Not Resolved]
  - Agranulocytosis [Unknown]
